FAERS Safety Report 7380394-8 (Version None)
Quarter: 2011Q1

REPORT INFORMATION
  Report Type: 
  Country: None (occurrence: None)
  Receive Date: 20110329
  Receipt Date: 20110321
  Transmission Date: 20110831
  Serious: Yes (Death)
  Sender: FDA-Public Use
  Company Number: FR-ROCHE-766787

PATIENT
  Sex: Male
  Weight: 60.5 kg

DRUGS (17)
  1. METHOXY POLYETHYLENE GLYCOL-EPOETIN BETA [Suspect]
     Dosage: DOSE FORM: IV FREQUENCY REPORTED AS MONTH.LAST DOSE PRIOR TO SAE : 1 MARCH 2011.
     Route: 042
     Dates: start: 20101201
  2. SEVELAMER [Concomitant]
     Dates: start: 20100501
  3. AMIODARONE HCL [Concomitant]
     Dates: start: 20080201
  4. OMEPRAZOLE [Concomitant]
     Dates: start: 20080201
  5. TIOTROPIUM [Concomitant]
     Dosage: DRUG REPORTED AS TIOTROPIUM ^BROMIUM^
     Dates: start: 20090301
  6. BISOPROLOL [Concomitant]
     Dates: start: 20080201
  7. PERINDOPRIL [Concomitant]
     Dates: start: 20080201
  8. MACROGOL [Concomitant]
     Dates: start: 20090101
  9. LEVOCARNITINE [Concomitant]
     Dates: start: 20090601
  10. CLOPIDOGREL [Concomitant]
     Dates: start: 20080201
  11. IRON [Concomitant]
     Dates: start: 20091101
  12. BECLOMETHASONE DIPROPIONATE [Concomitant]
     Dosage: DRUG REPORTED AS BECLOMETHASONE + FENOTEROL, TOTAL DAILY DOSE:100 PGS/6PGS
     Dates: start: 20110201
  13. FENOTEROL [Concomitant]
     Dosage: DRUG REPORTED AS BECLOMETHASONE + FENOTEROL, TOTAL DAILY DOSE:100 PGS/6PGS
     Dates: start: 20110201
  14. NITROGLYCERIN [Concomitant]
     Dosage: DRUG REPORTED AS TRINITRINE PATCH.
     Dates: start: 20080201
  15. ATORVASTATIN CALCIUM [Concomitant]
     Dates: start: 20080201
  16. SODIUM POLYSTYRENE SULFONATE [Concomitant]
     Dosage: DRUG REPORTED AS POLYSTYRENE SULFONATE DE SODIUM. DOSE:2CO/48 HOURS.
     Dates: start: 20090901
  17. ACIDE FOLIQUE [Concomitant]
     Dates: start: 20101001

REACTIONS (1)
  - DEATH [None]
